FAERS Safety Report 5637465-3 (Version None)
Quarter: 2008Q1

REPORT INFORMATION
  Report Type: 
  Country: None (occurrence: None)
  Receive Date: 20080225
  Receipt Date: 20080211
  Transmission Date: 20080703
  Serious: Yes (Other)
  Sender: FDA-Public Use
  Company Number: PT-BOEHRINGER INGELHEIM GMBH, GERMANY-2008-BP-02102RO

PATIENT
  Age: 30 Year
  Sex: Female

DRUGS (4)
  1. AZATHIOPRINE [Suspect]
     Indication: IMMUNOSUPPRESSION
  2. CYCLOSPORINE [Suspect]
     Indication: IMMUNOSUPPRESSION
  3. PREDNISOLONE [Suspect]
     Indication: IMMUNOSUPPRESSION
  4. TACROLIMUS [Suspect]
     Indication: TRANSPLANT REJECTION

REACTIONS (7)
  - AUTOIMMUNE HEPATITIS [None]
  - BILE DUCT STENOSIS [None]
  - LIVER TRANSPLANT [None]
  - NORMOCHROMIC NORMOCYTIC ANAEMIA [None]
  - SURGICAL PROCEDURE REPEATED [None]
  - TRANSPLANT REJECTION [None]
  - VENOOCCLUSIVE LIVER DISEASE [None]
